FAERS Safety Report 5234160-X (Version None)
Quarter: 2007Q1

REPORT INFORMATION
  Report Type: 
  Country: None (occurrence: None)
  Receive Date: 20070207
  Receipt Date: 20070122
  Transmission Date: 20070707
  Serious: Yes (Other)
  Sender: FDA-Public Use
  Company Number: CIP06002521

PATIENT
  Age: 89 Year
  Sex: Female
  Weight: 53.1 kg

DRUGS (8)
  1. ACTONEL [Suspect]
     Indication: OSTEOPOROSIS
     Dosage: 35 MG, 1/WEEK, ORAL
     Route: 048
     Dates: start: 20060607, end: 20060101
  2. ACTONEL [Suspect]
     Indication: OSTEOPOROSIS
     Dosage: 35 MG, 1/WEEK, ORAL
     Route: 048
     Dates: start: 20060801, end: 20061019
  3. NAMENDA [Concomitant]
  4. ASPIRIN [Concomitant]
  5. CALCARB WITH VITAMIN D (VITAMIN D NOS, CALCIUM CARBONATE) [Concomitant]
  6. METAMUCIL-2 [Concomitant]
  7. MULTIVIT (VITAMINS NOS) [Concomitant]
  8. ZOCOR [Concomitant]

REACTIONS (10)
  - CARDIAC MURMUR FUNCTIONAL [None]
  - CAROTID BRUIT [None]
  - CONFUSIONAL STATE [None]
  - DIZZINESS [None]
  - FALL [None]
  - HYPERTENSION [None]
  - NAUSEA [None]
  - RENAL ATROPHY [None]
  - RENAL FAILURE [None]
  - WEIGHT INCREASED [None]
